FAERS Safety Report 7549474-8 (Version None)
Quarter: 2011Q2

REPORT INFORMATION
  Report Type: 
  Country: None (occurrence: None)
  Receive Date: 20110615
  Receipt Date: 20050407
  Transmission Date: 20111010
  Serious: Yes (Other)
  Sender: FDA-Public Use
  Company Number: PHFR2002GB02778

PATIENT
  Sex: Female

DRUGS (1)
  1. CLOZARIL [Suspect]
     Indication: SCHIZOPHRENIA
     Route: 048
     Dates: start: 19980129

REACTIONS (3)
  - FULL BLOOD COUNT DECREASED [None]
  - NON-HODGKIN'S LYMPHOMA [None]
  - NECK MASS [None]
